FAERS Safety Report 7552756-7 (Version None)
Quarter: 2011Q2

REPORT INFORMATION
  Report Type: 
  Country: None (occurrence: None)
  Receive Date: 20110616
  Receipt Date: 20110610
  Transmission Date: 20111010
  Serious: Yes (Hospitalization)
  Sender: FDA-Public Use
  Company Number: US-ABBOTT-11P-163-0731661-00

PATIENT
  Sex: Male
  Weight: 74.91 kg

DRUGS (7)
  1. OMEPRAZOLE [Concomitant]
     Indication: GASTRIC DISORDER
  2. LANTUS [Concomitant]
     Indication: DIABETES MELLITUS
  3. HUMIRA [Suspect]
     Indication: ANKYLOSING SPONDYLITIS
     Dates: start: 20100101
  4. CELEBREX [Concomitant]
     Indication: ANKYLOSING SPONDYLITIS
  5. OMEPRAZOLE [Concomitant]
     Indication: PROPHYLAXIS
  6. METHOTREXATE [Concomitant]
     Indication: ANKYLOSING SPONDYLITIS
  7. HUMIRA [Suspect]
     Dates: start: 20020101, end: 20030101

REACTIONS (5)
  - ANKYLOSING SPONDYLITIS [None]
  - PAIN [None]
  - VISUAL IMPAIRMENT [None]
  - BLOOD GLUCOSE INCREASED [None]
  - TYPE 1 DIABETES MELLITUS [None]
